FAERS Safety Report 17858353 (Version 2)
Quarter: 2020Q2

REPORT INFORMATION
  Report Type: Report from Study
  Country: None (occurrence: US)
  Receive Date: 20200604
  Receipt Date: 20200605
  Transmission Date: 20200714
  Serious: No
  Sender: FDA-Public Use
  Company Number: US-US WORLDMEDS, LLC-USW201907-001241

PATIENT
  Age: 51 Year
  Sex: Female

DRUGS (13)
  1. SINEMET [Concomitant]
     Active Substance: CARBIDOPA\LEVODOPA
     Dosage: UNKNOWN
  2. OMEPRAZOLE. [Concomitant]
     Active Substance: OMEPRAZOLE
     Dosage: UNKNOWN
  3. ATENOLOL. [Concomitant]
     Active Substance: ATENOLOL
     Dosage: UNKNOWN
  4. APOKYN [Suspect]
     Active Substance: APOMORPHINE HYDROCHLORIDE
     Dates: end: 201912
  5. APOKYN [Suspect]
     Active Substance: APOMORPHINE HYDROCHLORIDE
     Indication: PARKINSON^S DISEASE
     Route: 058
     Dates: start: 20190411, end: 201912
  6. PRAVASTATIN. [Concomitant]
     Active Substance: PRAVASTATIN
     Dosage: UNKNOWN
  7. TRAMADOL. [Concomitant]
     Active Substance: TRAMADOL
     Dosage: UNKNOWN
  8. APOKYN [Suspect]
     Active Substance: APOMORPHINE HYDROCHLORIDE
     Route: 058
     Dates: start: 20190411, end: 20200201
  9. XANAX [Concomitant]
     Active Substance: ALPRAZOLAM
     Dosage: UNKNOWN
  10. VALSARTAN. [Concomitant]
     Active Substance: VALSARTAN
     Dosage: UNKNOWN
  11. XADAGO [Concomitant]
     Active Substance: SAFINAMIDE MESYLATE
     Dosage: UNKNOWN
  12. ALPRAZOLAM. [Concomitant]
     Active Substance: ALPRAZOLAM
     Dosage: UNKNOWN
  13. NEUPRO [Concomitant]
     Active Substance: ROTIGOTINE
     Dosage: UNKNOWN

REACTIONS (6)
  - Pallor [Recovered/Resolved]
  - Nausea [Recovered/Resolved]
  - Foot fracture [Recovered/Resolved]
  - Hypotension [Recovered/Resolved]
  - Nausea [Recovered/Resolved]
  - Drug intolerance [Recovered/Resolved]

NARRATIVE: CASE EVENT DATE: 201905
